FAERS Safety Report 9094540 (Version 1)
Quarter: 2013Q1

REPORT INFORMATION
  Report Type: Spontaneous
  Country: US (occurrence: US)
  Receive Date: 20130219
  Receipt Date: 20130219
  Transmission Date: 20140127
  Serious: No
  Sender: FDA-Public Use
  Company Number: US-009507513-1302USA007466

PATIENT
  Sex: 0

DRUGS (1)
  1. NITRO-DUR [Suspect]
     Dosage: UNK, BID
     Route: 062

REACTIONS (1)
  - Dermatitis contact [Unknown]
